FAERS Safety Report 8853246 (Version 2)
Quarter: 2013Q2

REPORT INFORMATION
  Report Type: Report from Study
  Country: US (occurrence: US)
  Receive Date: 20121022
  Receipt Date: 20130515
  Transmission Date: 20140414
  Serious: Yes (Other)
  Sender: FDA-Public Use
  Company Number: US-BAYER-2012-080438

PATIENT
  Age: 18 Year
  Sex: Female

DRUGS (8)
  1. BETASERON [Suspect]
     Indication: RELAPSING-REMITTING MULTIPLE SCLEROSIS
     Dosage: 2 MIU, QOD
     Route: 058
     Dates: start: 20120724, end: 20120802
  2. BETASERON [Suspect]
     Indication: RELAPSING-REMITTING MULTIPLE SCLEROSIS
     Dosage: 0.625 MG ; WEEK 1-2
     Route: 058
     Dates: start: 20120705, end: 20120924
  3. ORAL CONTRACEPTIVE NOS [Concomitant]
  4. LYRICA [Concomitant]
     Dosage: 150 MG, HS
     Dates: end: 201208
  5. MILNACIPRAN [Concomitant]
     Indication: PREGNANCY
     Dosage: UNK
     Dates: end: 201208
  6. TOPAMAX [Concomitant]
     Indication: PREGNANCY
     Dosage: 100 MG, BID
     Dates: end: 201208
  7. BUSPAR [Concomitant]
     Indication: PREGNANCY
     Dosage: UNK MG, UNK
     Dates: end: 201208
  8. VICODIN [Concomitant]
     Indication: PREGNANCY
     Dosage: 7.5 MG, UNK
     Dates: end: 201208

REACTIONS (6)
  - Abdominal pain upper [None]
  - Vaginal haemorrhage [None]
  - Nausea [None]
  - Dizziness [None]
  - Exposure during pregnancy [Recovered/Resolved]
  - Maternal drugs affecting foetus [None]
